FAERS Safety Report 4832829-X (Version None)
Quarter: 2005Q4

REPORT INFORMATION
  Report Type: 
  Country: None (occurrence: None)
  Receive Date: 20051121
  Receipt Date: 20050902
  Transmission Date: 20060501
  Serious: Yes (Death, Hospitalization, Other)
  Sender: FDA-Public Use
  Company Number: US-MERCK-0509USA00579

PATIENT
  Age: 79 Year
  Sex: Female
  Weight: 56 kg

DRUGS (16)
  1. VIOXX [Suspect]
     Indication: SPINAL COLUMN STENOSIS
     Route: 048
     Dates: start: 20000711, end: 20040927
  2. VIOXX [Suspect]
     Indication: OSTEOARTHRITIS
     Route: 048
     Dates: start: 20000711, end: 20040927
  3. ALPRAZOLAM [Concomitant]
     Indication: ANXIETY
     Route: 065
  4. DARVOCET-N 100 [Concomitant]
     Indication: PAIN
     Route: 065
  5. DIPROLENE [Concomitant]
     Indication: NEURALGIA
     Route: 065
  6. ESTROPIPATE [Concomitant]
     Route: 065
  7. GLUCOSAMINE [Concomitant]
     Indication: ARTHRITIS
     Route: 065
  8. HYZAAR [Concomitant]
     Indication: HYPERTENSION
     Route: 065
  9. MECLIZINE [Concomitant]
     Route: 065
  10. METAMUCIL [Concomitant]
     Indication: BLOOD CHOLESTEROL INCREASED
     Route: 065
  11. PREMPRO [Concomitant]
     Indication: HORMONE REPLACEMENT THERAPY
     Route: 065
  12. SYNTHROID [Concomitant]
     Indication: HYPOTHYROIDISM
     Route: 065
  13. TYLENOL (CAPLET) [Concomitant]
     Indication: NEURALGIA
     Route: 065
  14. XANAX [Concomitant]
     Route: 065
  15. ZANTAC [Concomitant]
     Indication: GASTROOESOPHAGEAL REFLUX DISEASE
     Route: 065
  16. HYDROCHLOROTHIAZIDE [Concomitant]
     Route: 065

REACTIONS (21)
  - ANAEMIA [None]
  - ARTERIOSCLEROSIS CORONARY ARTERY [None]
  - BRONCHOPNEUMONIA [None]
  - CARDIAC FAILURE CONGESTIVE [None]
  - CARDIOMEGALY [None]
  - CATARACT [None]
  - HIATUS HERNIA [None]
  - HYPERCHOLESTEROLAEMIA [None]
  - HYPONATRAEMIA [None]
  - LACTIC ACIDOSIS [None]
  - LOSS OF CONSCIOUSNESS [None]
  - METABOLIC ACIDOSIS [None]
  - MYOCARDIAL INFARCTION [None]
  - NASAL CONGESTION [None]
  - NEURITIS [None]
  - PLEURAL EFFUSION [None]
  - PULMONARY EMBOLISM [None]
  - RESPIRATORY TRACT INFECTION [None]
  - SILENT MYOCARDIAL INFARCTION [None]
  - SINUSITIS [None]
  - THROMBOPHLEBITIS [None]
